FAERS Safety Report 7729896-2 (Version None)
Quarter: 2011Q3

REPORT INFORMATION
  Report Type: 
  Country: None (occurrence: None)
  Receive Date: 20110901
  Receipt Date: 20110901
  Transmission Date: 20111222
  Serious: Yes (Other)
  Sender: FDA-Public Use
  Company Number: None

PATIENT
  Age: 52 Year
  Sex: Female

DRUGS (2)
  1. TRILEPTAL [Suspect]
     Indication: CONVULSION
     Dosage: 300MG BID ORAL
     Route: 048
     Dates: start: 20110801
  2. TRILEPTAL [Suspect]
     Indication: CONVULSION
     Dosage: 300MG BID ORAL
     Route: 048
     Dates: start: 20110710

REACTIONS (1)
  - HEADACHE [None]
